FAERS Safety Report 9198047 (Version 3)
Quarter: 2013Q2

REPORT INFORMATION
  Report Type: Spontaneous
  Country: JP (occurrence: JP)
  Receive Date: 20130328
  Receipt Date: 20130410
  Transmission Date: 20140414
  Serious: Yes (Other)
  Sender: FDA-Public Use
  Company Number: JP-BAYER-2013-036879

PATIENT
  Age: 74 Year
  Sex: Male

DRUGS (4)
  1. BAYASPIRIN [Suspect]
     Indication: CEREBRAL INFARCTION
     Dosage: UNK
     Route: 048
  2. DONEPEZIL HYDROCHLORIDE [Suspect]
     Dosage: UNK
     Route: 048
  3. UNFRACTIONATED HEPARIN [Suspect]
     Indication: CEREBRAL INFARCTION
  4. CLOPIDOGREL SULFATE [Suspect]
     Indication: CEREBRAL INFARCTION
     Route: 048

REACTIONS (2)
  - Melaena [None]
  - Diverticulum intestinal [None]
